FAERS Safety Report 8925949 (Version 1)
Quarter: 2012Q4

REPORT INFORMATION
  Report Type: 
  Country: US (occurrence: US)
  Receive Date: 20121126
  Receipt Date: 20121126
  Transmission Date: 20130627
  Serious: Yes (Other)
  Sender: FDA-Public Use
  Company Number: PHHY2012US103503

PATIENT
  Sex: Male

DRUGS (5)
  1. GILENYA [Suspect]
     Indication: MULTIPLE SCLEROSIS
     Dosage: 0.5 mg, QD
     Route: 048
     Dates: start: 20110208
  2. RESTASIS [Concomitant]
     Dosage: UNK UKN, UNK
  3. COZAAR [Concomitant]
     Dosage: UNK UKN, UNK
  4. PATADAY [Concomitant]
     Dosage: UNK UKN, UNK
  5. BACLOFEN [Concomitant]
     Dosage: UNK UKN, UNK

REACTIONS (3)
  - Hepatic steatosis [Unknown]
  - Hepatic enzyme increased [Unknown]
  - Acne [Unknown]
